FAERS Safety Report 20826531 (Version 1)
Quarter: 2022Q2

REPORT INFORMATION
  Report Type: Spontaneous
  Country: CN (occurrence: CN)
  Receive Date: 20220513
  Receipt Date: 20220513
  Transmission Date: 20220721
  Serious: Yes (Other)
  Sender: FDA-Public Use
  Company Number: CN-009507513-2205CHN002796

PATIENT
  Age: 64 Year
  Sex: Male
  Weight: 85 kg

DRUGS (16)
  1. INVANZ [Suspect]
     Active Substance: ERTAPENEM SODIUM
     Indication: Pancreatitis acute
     Dosage: 1 G, QD
     Route: 041
     Dates: start: 20220406, end: 20220412
  2. INVANZ [Suspect]
     Active Substance: ERTAPENEM SODIUM
     Indication: Granulomatosis with polyangiitis
  3. INVANZ [Suspect]
     Active Substance: ERTAPENEM SODIUM
     Indication: End stage renal disease
  4. INVANZ [Suspect]
     Active Substance: ERTAPENEM SODIUM
     Indication: Arteriosclerosis coronary artery
  5. INVANZ [Suspect]
     Active Substance: ERTAPENEM SODIUM
     Indication: Hypertension
  6. INVANZ [Suspect]
     Active Substance: ERTAPENEM SODIUM
     Indication: Type 2 diabetes mellitus
  7. INVANZ [Suspect]
     Active Substance: ERTAPENEM SODIUM
     Indication: Gallbladder polyp
  8. INVANZ [Suspect]
     Active Substance: ERTAPENEM SODIUM
     Indication: Diabetic foot
  9. SODIUM CHLORIDE [Concomitant]
     Active Substance: SODIUM CHLORIDE
     Indication: Pancreatitis acute
     Dosage: 100 ML, QD
     Route: 041
     Dates: start: 20220406, end: 20220412
  10. SODIUM CHLORIDE [Concomitant]
     Active Substance: SODIUM CHLORIDE
     Indication: Granulomatosis with polyangiitis
  11. SODIUM CHLORIDE [Concomitant]
     Active Substance: SODIUM CHLORIDE
     Indication: End stage renal disease
  12. SODIUM CHLORIDE [Concomitant]
     Active Substance: SODIUM CHLORIDE
     Indication: Arteriosclerosis coronary artery
  13. SODIUM CHLORIDE [Concomitant]
     Active Substance: SODIUM CHLORIDE
     Indication: Hypertension
  14. SODIUM CHLORIDE [Concomitant]
     Active Substance: SODIUM CHLORIDE
     Indication: Type 2 diabetes mellitus
  15. SODIUM CHLORIDE [Concomitant]
     Active Substance: SODIUM CHLORIDE
     Indication: Gallbladder polyp
  16. SODIUM CHLORIDE [Concomitant]
     Active Substance: SODIUM CHLORIDE
     Indication: Diabetic foot

REACTIONS (2)
  - Myelosuppression [Recovering/Resolving]
  - Product use in unapproved indication [Unknown]

NARRATIVE: CASE EVENT DATE: 20220412
